FAERS Safety Report 13109817 (Version 1)
Quarter: 2017Q1

REPORT INFORMATION
  Report Type: Spontaneous
  Country: SE (occurrence: SE)
  Receive Date: 20170112
  Receipt Date: 20170112
  Transmission Date: 20170428
  Serious: Yes (Hospitalization)
  Sender: FDA-Public Use
  Company Number: SE-TEVA-728628ISR

PATIENT
  Age: 82 Year
  Sex: Male

DRUGS (1)
  1. CAPECITABINE. [Suspect]
     Active Substance: CAPECITABINE
     Route: 048

REACTIONS (4)
  - Vomiting [Unknown]
  - Diarrhoea [Unknown]
  - Mucous membrane disorder [Unknown]
  - Palmar-plantar erythrodysaesthesia syndrome [Unknown]
